FAERS Safety Report 13457506 (Version 1)
Quarter: 2017Q2

REPORT INFORMATION
  Report Type: Spontaneous
  Country: FR (occurrence: FR)
  Receive Date: 20170419
  Receipt Date: 20170419
  Transmission Date: 20170830
  Serious: Yes (Congenital Anomaly)
  Sender: FDA-Public Use
  Company Number: FR-TEVA-761082ROM

PATIENT
  Age: 0 Day
  Sex: Female
  Weight: 1.63 kg

DRUGS (1)
  1. COPAXONE [Suspect]
     Active Substance: GLATIRAMER ACETATE
     Indication: MULTIPLE SCLEROSIS
     Dosage: COPAXONE : 20 MG/ML
     Route: 064
     Dates: start: 20160514, end: 20161001

REACTIONS (5)
  - Acute kidney injury [Recovered/Resolved]
  - Foetal exposure during pregnancy [Unknown]
  - Neonatal haemochromatosis [Unknown]
  - Hepatic failure [Not Recovered/Not Resolved]
  - Cardiac hypertrophy [Recovered/Resolved]

NARRATIVE: CASE EVENT DATE: 20161217
